FAERS Safety Report 6356073-2 (Version None)
Quarter: 2009Q3

REPORT INFORMATION
  Report Type: 
  Country: None (occurrence: None)
  Receive Date: 20090915
  Receipt Date: 20090911
  Transmission Date: 20100115
  Serious: Yes (Life-Threatening, Hospitalization)
  Sender: FDA-Public Use
  Company Number: CZ-BRISTOL-MYERS SQUIBB COMPANY-14738926

PATIENT
  Age: 55 Year
  Sex: Female

DRUGS (1)
  1. DASATINIB [Suspect]
     Indication: CHRONIC MYELOID LEUKAEMIA
     Dosage: INTERRUPTED ON 10AUG09
     Route: 048
     Dates: start: 20080918

REACTIONS (1)
  - CARDIAC ARREST [None]
